FAERS Safety Report 4940351-5 (Version None)
Quarter: 2006Q1

REPORT INFORMATION
  Report Type: 
  Country: None (occurrence: None)
  Receive Date: 20060310
  Receipt Date: 20041123
  Transmission Date: 20060701
  Serious: Yes (Hospitalization, Other)
  Sender: FDA-Public Use
  Company Number: US-MERCK-0411USA03935

PATIENT
  Age: 55 Year
  Sex: Male
  Weight: 102 kg

DRUGS (1)
  1. VIOXX [Suspect]
     Indication: ARTHRITIS
     Route: 048
     Dates: start: 20000201, end: 20011201

REACTIONS (10)
  - ANGINA UNSTABLE [None]
  - ARTERIOSCLEROSIS CORONARY ARTERY [None]
  - BENIGN PROSTATIC HYPERPLASIA [None]
  - BRONCHITIS ACUTE [None]
  - CHEST PAIN [None]
  - EYE PAIN [None]
  - FLANK PAIN [None]
  - LIPOMA [None]
  - PROSTATE CANCER [None]
  - URETHRITIS GONOCOCCAL [None]
